FAERS Safety Report 13110846 (Version 1)
Quarter: 2017Q1

REPORT INFORMATION
  Report Type: Spontaneous
  Country: US (occurrence: US)
  Receive Date: 20170112
  Receipt Date: 20170112
  Transmission Date: 20170428
  Serious: Yes (Other)
  Sender: FDA-Public Use
  Company Number: US-TEVA-728943USA

PATIENT
  Sex: Female
  Weight: 48 kg

DRUGS (3)
  1. GABAPENTIN. [Suspect]
     Active Substance: GABAPENTIN
     Dosage: TWO TABLETS IN THE AM, ONE IN THE AFTERNOON AND TWO IN THE EVENING
  2. GABAPENTIN. [Suspect]
     Active Substance: GABAPENTIN
     Indication: NEURALGIA
     Dates: start: 201610
  3. GABAPENTIN. [Suspect]
     Active Substance: GABAPENTIN
     Dosage: TWO TABLETS FOUR TIMES A DAY

REACTIONS (6)
  - Herpes zoster [Unknown]
  - Constipation [Unknown]
  - Loss of consciousness [Unknown]
  - Neuralgia [Not Recovered/Not Resolved]
  - Weight decreased [Unknown]
  - Drug ineffective [Unknown]

NARRATIVE: CASE EVENT DATE: 2016
